FAERS Safety Report 25986123 (Version 1)
Quarter: 2025Q4

REPORT INFORMATION
  Report Type: Spontaneous
  Country: US (occurrence: US)
  Receive Date: 20251031
  Receipt Date: 20251031
  Transmission Date: 20260117
  Serious: No
  Sender: PFIZER
  Company Number: US-PFIZER INC-202500213047

PATIENT
  Age: 60 Year
  Sex: Female
  Weight: 104.33 kg

DRUGS (2)
  1. SILVADENE [Suspect]
     Active Substance: SILVER SULFADIAZINE
     Indication: Burns second degree
     Dosage: UNK, APPLIED IT ABOUT 9 TIMES
  2. BENAZEPRIL [Concomitant]
     Active Substance: BENAZEPRIL HYDROCHLORIDE
     Indication: Hypertension
     Dosage: 20 MG, 2X/DAY

REACTIONS (2)
  - Application site burn [Unknown]
  - Pruritus [Unknown]
